FAERS Safety Report 19615915 (Version 1)
Quarter: 2021Q3

REPORT INFORMATION
  Report Type: Spontaneous
  Country: HU (occurrence: HU)
  Receive Date: 20210727
  Receipt Date: 20210727
  Transmission Date: 20211014
  Serious: Yes (Other)
  Sender: FDA-Public Use
  Company Number: HU-MYLANLABS-2021M1044650

PATIENT
  Age: 59 Year
  Sex: Female

DRUGS (8)
  1. CISPLATIN. [Suspect]
     Active Substance: CISPLATIN
     Indication: METASTASES TO CENTRAL NERVOUS SYSTEM
  2. TRAMETINIB [Suspect]
     Active Substance: TRAMETINIB
     Indication: METASTASES TO CENTRAL NERVOUS SYSTEM
  3. DABRAFENIB [Suspect]
     Active Substance: DABRAFENIB
     Indication: METASTASES TO CENTRAL NERVOUS SYSTEM
     Dosage: 300 MILLIGRAM, QD (150 MG, BID)
     Route: 048
     Dates: start: 20160704, end: 2017
  4. GEMCITABINE. [Suspect]
     Active Substance: GEMCITABINE
     Indication: BILE DUCT CANCER
  5. CISPLATIN. [Suspect]
     Active Substance: CISPLATIN
     Indication: BILE DUCT CANCER
     Dosage: 25 MILLIGRAM/SQ. METER (25 MG/M2, 1, 8 DAY FOR 3 WEEKS)
     Route: 042
     Dates: start: 20160510, end: 2016
  6. DABRAFENIB [Suspect]
     Active Substance: DABRAFENIB
     Indication: BILE DUCT CANCER
  7. TRAMETINIB [Suspect]
     Active Substance: TRAMETINIB
     Indication: BILE DUCT CANCER
     Dosage: 2 MG, QD
     Route: 048
     Dates: start: 20160704, end: 2017
  8. GEMCITABINE. [Suspect]
     Active Substance: GEMCITABINE
     Indication: METASTASES TO CENTRAL NERVOUS SYSTEM
     Dosage: 1000 MILLIGRAM/SQ. METER (1000 MG/M2, FOR 1, 8 DAY FOR 3 WEEKS)
     Route: 042
     Dates: start: 20160510, end: 2016

REACTIONS (6)
  - Weight increased [Recovering/Resolving]
  - Bile duct cancer [Recovering/Resolving]
  - Malignant neoplasm progression [Recovering/Resolving]
  - Nausea [Unknown]
  - BRAF gene mutation [Unknown]
  - TP53 gene mutation [Unknown]

NARRATIVE: CASE EVENT DATE: 2016
